FAERS Safety Report 11238641 (Version 3)
Quarter: 2015Q3

REPORT INFORMATION
  Report Type: Report from Study
  Country: MX (occurrence: MX)
  Receive Date: 20150706
  Receipt Date: 20150730
  Transmission Date: 20151125
  Serious: No
  Sender: FDA-Public Use
  Company Number: PHHY2015MX077186

PATIENT
  Sex: Female
  Weight: 83 kg

DRUGS (4)
  1. GALVUS MET [Suspect]
     Active Substance: METFORMIN HYDROCHLORIDE\VILDAGLIPTIN
     Indication: TYPE 2 DIABETES MELLITUS
     Dosage: 1 DF (500/50 MG), (5 YEARS AGO APPROXIMATELY)
     Route: 048
  2. CO-DIOVAN [Suspect]
     Active Substance: HYDROCHLOROTHIAZIDE\VALSARTAN
     Indication: HYPERTENSION
     Dosage: 2 DF (160/25 MG), QD, 10 YEARS AGO
     Route: 048
  3. COMBIVENT [Concomitant]
     Active Substance: ALBUTEROL SULFATE\IPRATROPIUM BROMIDE
     Indication: PRODUCT USED FOR UNKNOWN INDICATION
     Dosage: 2 OT, BID (1 IN THE MORNING AND 1 IN THE AFTERNOON)
     Route: 055
     Dates: start: 201504
  4. CO-DIOVAN [Suspect]
     Active Substance: HYDROCHLOROTHIAZIDE\VALSARTAN
     Dosage: 1 DF (160/12.5 MG), QD (5 YEARS AGO APPROXIMATELY)
     Route: 048

REACTIONS (7)
  - Cough [Unknown]
  - Memory impairment [Unknown]
  - Bone pain [Not Recovered/Not Resolved]
  - Hepatic steatosis [Unknown]
  - Arthralgia [Unknown]
  - Nasopharyngitis [Unknown]
  - Bronchial disorder [Unknown]
